FAERS Safety Report 8222985-8 (Version None)
Quarter: 2012Q1

REPORT INFORMATION
  Report Type: 
  Country: None (occurrence: None)
  Receive Date: 20120320
  Receipt Date: 20120312
  Transmission Date: 20120608
  Serious: Yes (Death)
  Sender: FDA-Public Use
  Company Number: PHEH2011US05239

PATIENT
  Sex: Female
  Weight: 62.585 kg

DRUGS (4)
  1. CELEBREX [Concomitant]
  2. TRAZEPAM [Concomitant]
     Indication: INSOMNIA
     Dosage: 15 MG, UNK
     Route: 048
  3. IBUPROFEN [Concomitant]
     Indication: ARTHRITIS
     Dosage: 800 MG, TID
     Route: 048
  4. GILENYA [Suspect]
     Indication: RELAPSING-REMITTING MULTIPLE SCLEROSIS
     Dosage: 0.5 MG, DAILY
     Route: 048
     Dates: start: 20110419

REACTIONS (1)
  - MULTIPLE SCLEROSIS [None]
